FAERS Safety Report 14406379 (Version 1)
Quarter: 2018Q1

REPORT INFORMATION
  Report Type: Spontaneous
  Country: US (occurrence: US)
  Receive Date: 20180118
  Receipt Date: 20180118
  Transmission Date: 20180509
  Serious: Yes (Other)
  Sender: FDA-Public Use
  Company Number: None

PATIENT
  Age: 75 Year
  Sex: Female

DRUGS (1)
  1. CLOPIDOGREL [Suspect]
     Active Substance: CLOPIDOGREL BISULFATE
     Indication: THROMBOSIS PROPHYLAXIS
     Route: 048
     Dates: start: 20171218, end: 20171225

REACTIONS (8)
  - Erythema [None]
  - Pharyngeal erythema [None]
  - Paraesthesia oral [None]
  - Arterial occlusive disease [None]
  - Pruritus [None]
  - Ear pruritus [None]
  - Urticaria [None]
  - Throat irritation [None]

NARRATIVE: CASE EVENT DATE: 20171225
